FAERS Safety Report 24679433 (Version 3)
Quarter: 2025Q3

REPORT INFORMATION
  Report Type: Report from Study
  Country: US (occurrence: US)
  Receive Date: 20241129
  Receipt Date: 20250916
  Transmission Date: 20251020
  Serious: Yes (Hospitalization)
  Sender: ASTELLAS
  Company Number: US-ASTELLAS-2024-AER-021177

PATIENT
  Sex: Male

DRUGS (2)
  1. GILTERITINIB [Suspect]
     Active Substance: GILTERITINIB
     Indication: Acute myeloid leukaemia
     Route: 048
     Dates: start: 20241001
  2. VENCLEXTA [Suspect]
     Active Substance: VENETOCLAX
     Indication: Product used for unknown indication
     Route: 050

REACTIONS (6)
  - Full blood count decreased [Unknown]
  - Platelet count decreased [Unknown]
  - Cellulitis [Unknown]
  - Pyrexia [Unknown]
  - Product use issue [Unknown]
  - Off label use [Unknown]
